FAERS Safety Report 6636639-2 (Version None)
Quarter: 2010Q1

REPORT INFORMATION
  Report Type: 
  Country: None (occurrence: None)
  Receive Date: 20100316
  Receipt Date: 20100309
  Transmission Date: 20100710
  Serious: Yes (Death, Life-Threatening, Hospitalization, Disabling)
  Sender: FDA-Public Use
  Company Number: A0320848A

PATIENT
  Age: 46 Year
  Sex: Female
  Weight: 67.12 kg

DRUGS (5)
  1. AVANDIA [Suspect]
     Route: 048
     Dates: start: 19990901, end: 19991101
  2. AVANDIA [Suspect]
     Dosage: 4MG PER DAY
  3. SYNTHROID [Concomitant]
     Dosage: .125MG PER DAY
     Route: 048
  4. INSULIN [Concomitant]
  5. THYROID REPLACEMENT [Concomitant]

REACTIONS (39)
  - ABDOMINAL DISCOMFORT [None]
  - ACUTE HEPATIC FAILURE [None]
  - ADRENAL CORTEX NECROSIS [None]
  - ALANINE AMINOTRANSFERASE INCREASED [None]
  - ASPARTATE AMINOTRANSFERASE INCREASED [None]
  - BLOOD ALKALINE PHOSPHATASE INCREASED [None]
  - BLOOD BILIRUBIN INCREASED [None]
  - BRADYPHRENIA [None]
  - CHROMATURIA [None]
  - COMA [None]
  - CONVULSION [None]
  - DECREASED APPETITE [None]
  - DISABILITY [None]
  - DYSPNOEA [None]
  - ENDOCARDITIS STAPHYLOCOCCAL [None]
  - FATIGUE [None]
  - HEPATIC ENCEPHALOPATHY [None]
  - HEPATIC NECROSIS [None]
  - HEPATITIS [None]
  - HYPERSENSITIVITY [None]
  - JAUNDICE CHOLESTATIC [None]
  - LACTIC ACIDOSIS [None]
  - LIVER DISORDER [None]
  - MYOCARDITIS [None]
  - NAUSEA [None]
  - OCULAR ICTERUS [None]
  - PNEUMONIA [None]
  - PROTHROMBIN TIME PROLONGED [None]
  - PRURITUS [None]
  - PULMONARY ALVEOLAR HAEMORRHAGE [None]
  - PULMONARY OEDEMA [None]
  - PYELONEPHRITIS ACUTE [None]
  - RENAL FAILURE ACUTE [None]
  - RENAL TUBULAR NECROSIS [None]
  - RESPIRATORY ARREST [None]
  - SHOCK [None]
  - URINARY TRACT INFECTION [None]
  - UROSEPSIS [None]
  - WEIGHT DECREASED [None]
